FAERS Safety Report 4889480-5 (Version None)
Quarter: 2006Q1

REPORT INFORMATION
  Report Type: 
  Country: None (occurrence: None)
  Receive Date: 20060124
  Receipt Date: 20060109
  Transmission Date: 20060701
  Serious: Yes (Other)
  Sender: FDA-Public Use
  Company Number: PHFR2006GB00501

PATIENT
  Age: 37 Year
  Sex: Female

DRUGS (8)
  1. GANCICLOVIR [Suspect]
     Dosage: 250 MG, BID
     Route: 065
     Dates: start: 20051001
  2. AZATHIOPRINE [Suspect]
     Route: 065
     Dates: start: 20050901
  3. PARACETAMOL [Concomitant]
     Indication: ANALGESIC EFFECT
     Dosage: 1 G, QID PRN
     Route: 048
  4. CODEINE PHOSPHATE [Concomitant]
     Indication: ANALGESIC EFFECT
     Dosage: 60 MG, BID PRN
     Route: 048
  5. PREDNISOLONE [Concomitant]
     Dosage: 40MG DAILY
     Route: 048
     Dates: start: 20051001, end: 20051201
  6. CYCLOSPORINE [Suspect]
     Dosage: 125 MG, BID
     Route: 065
     Dates: start: 20050901
  7. BUPIVACAINE [Interacting]
     Indication: ANALGESIC EFFECT
     Route: 008
     Dates: start: 20051018, end: 20051018
  8. HYDROCORTISONE [Concomitant]
     Dosage: 100 MG, QID
     Route: 042
     Dates: start: 20050930, end: 20051020

REACTIONS (2)
  - DRUG EXPOSURE DURING PREGNANCY [None]
  - TALIPES [None]
